FAERS Safety Report 14506816 (Version 1)
Quarter: 2018Q1

REPORT INFORMATION
  Report Type: Spontaneous
  Country: RO (occurrence: RO)
  Receive Date: 20180208
  Receipt Date: 20180208
  Transmission Date: 20180509
  Serious: Yes (Life-Threatening, Hospitalization)
  Sender: FDA-Public Use
  Company Number: RO-SA-2018SA029984

PATIENT
  Age: 47 Year
  Sex: Male

DRUGS (1)
  1. LANTUS [Suspect]
     Active Substance: INSULIN GLARGINE
     Indication: TYPE 2 DIABETES MELLITUS
     Dosage: DOSE:1800 UNIT(S)
     Route: 051
     Dates: start: 20180202, end: 20180202

REACTIONS (3)
  - Suicide attempt [Unknown]
  - Hypoglycaemic coma [Unknown]
  - Overdose [Unknown]

NARRATIVE: CASE EVENT DATE: 20180202
